FAERS Safety Report 6985329-5 (Version None)
Quarter: 2010Q3

REPORT INFORMATION
  Report Type: 
  Country: None (occurrence: None)
  Receive Date: 20100915
  Receipt Date: 20100811
  Transmission Date: 20110219
  Serious: No
  Sender: FDA-Public Use
  Company Number: US-PFIZER INC-2010101842

PATIENT
  Sex: Female
  Weight: 132 kg

DRUGS (7)
  1. SUTENT [Suspect]
     Indication: RENAL CELL CARCINOMA
     Dosage: 500 MG DAILY, FOR 14 DAYS IN A MONTH AND OFF FROM THE DRUG FOR NEXT 14 DAYS
     Route: 048
     Dates: start: 20090401, end: 20100808
  2. LIPITOR [Concomitant]
     Indication: BLOOD CHOLESTEROL
     Dosage: 10 MG, DAILY
     Route: 048
  3. METOPROLOL [Concomitant]
     Indication: BLOOD PRESSURE
     Dosage: 25 MG, DAILY
     Dates: start: 20000101
  4. LISINOPRIL [Concomitant]
     Indication: BLOOD PRESSURE
     Dosage: 10/12.5MG, DAILY
     Dates: start: 20000101
  5. LEVOTHYROXINE [Concomitant]
     Indication: THYROID DISORDER
     Dosage: 0.75 MG, DAILY
     Dates: start: 20000101
  6. CARBIDOPA AND LEVODOPA [Concomitant]
     Indication: RESTLESS LEGS SYNDROME
     Dosage: 25/100 MG, DAILY
     Dates: start: 20000101
  7. METFORMIN [Concomitant]
     Indication: DIABETES MELLITUS
     Dosage: 500 MG, 2X/DAY
     Route: 048

REACTIONS (3)
  - GINGIVAL BLEEDING [None]
  - TOOTHACHE [None]
  - VULVOVAGINAL PRURITUS [None]
